FAERS Safety Report 7036340-X (Version None)
Quarter: 2010Q4

REPORT INFORMATION
  Report Type: 
  Country: None (occurrence: None)
  Receive Date: 20101008
  Receipt Date: 20100930
  Transmission Date: 20110411
  Serious: Yes (Hospitalization)
  Sender: FDA-Public Use
  Company Number: PHHO2010FR13965

PATIENT
  Sex: Female
  Weight: 69 kg

DRUGS (3)
  1. NEORAL [Suspect]
     Indication: RENAL TRANSPLANT
     Dosage: 325 MG
     Route: 048
     Dates: start: 20100819
  2. MYFORTIC [Concomitant]
     Indication: RENAL TRANSPLANT
     Dosage: UNK
     Route: 048
     Dates: start: 20100818
  3. CORTANCYL [Concomitant]
     Indication: RENAL TRANSPLANT
     Dosage: UNK
     Route: 048

REACTIONS (5)
  - BRONCHITIS [None]
  - BRONCHOPNEUMOPATHY [None]
  - CONCOMITANT DISEASE PROGRESSION [None]
  - COUGH [None]
  - PYREXIA [None]
